FAERS Safety Report 11185116 (Version 1)
Quarter: 2015Q2

REPORT INFORMATION
  Report Type: Spontaneous
  Country: UA (occurrence: UA)
  Receive Date: 20150612
  Receipt Date: 20150612
  Transmission Date: 20150821
  Serious: Yes (Life-Threatening, Hospitalization)
  Sender: FDA-Public Use
  Company Number: UA-ASTRAZENECA-2015SE55464

PATIENT
  Age: 55 Year
  Sex: Female
  Weight: 120 kg

DRUGS (7)
  1. NPH INSULIN [Concomitant]
     Active Substance: INSULIN BEEF
  2. FORXIGA [Suspect]
     Active Substance: DAPAGLIFLOZIN
     Indication: TYPE 2 DIABETES MELLITUS
     Route: 048
     Dates: start: 20141103, end: 20150511
  3. QUETIRON [Concomitant]
     Route: 048
  4. BISOPROLOL [Concomitant]
     Active Substance: BISOPROLOL
     Route: 048
  5. KOMBOGLYZA XR [Concomitant]
     Dosage: 5/1000 MG DAILY
     Route: 048
  6. METFORMIN [Concomitant]
     Active Substance: METFORMIN HYDROCHLORIDE
     Route: 048
  7. SOLERON [Concomitant]
     Route: 048

REACTIONS (1)
  - Ketoacidosis [Recovered/Resolved]
